FAERS Safety Report 11677947 (Version 2)
Quarter: 2015Q4

REPORT INFORMATION
  Report Type: Spontaneous
  Country: US (occurrence: US)
  Receive Date: 20151027
  Receipt Date: 20151104
  Transmission Date: 20160304
  Serious: No
  Sender: FDA-Public Use
  Company Number: US-ELI_LILLY_AND_COMPANY-US201007001191

PATIENT
  Age: 79 Year
  Sex: Female

DRUGS (1)
  1. FORTEO [Suspect]
     Active Substance: TERIPARATIDE
     Indication: OSTEOPOROSIS

REACTIONS (11)
  - Cardiac disorder [Unknown]
  - Nail disorder [Unknown]
  - Hypersensitivity [Unknown]
  - Tension [Unknown]
  - Stress [Unknown]
  - Spinal deformity [Unknown]
  - Glaucoma [Unknown]
  - Discomfort [Unknown]
  - Heart rate irregular [Unknown]
  - Anxiety [Unknown]
  - Dizziness [Unknown]
